FAERS Safety Report 7413070-3 (Version None)
Quarter: 2011Q2

REPORT INFORMATION
  Report Type: 
  Country: None (occurrence: None)
  Receive Date: 20110413
  Receipt Date: 20110401
  Transmission Date: 20111010
  Serious: Yes (Hospitalization, Disabling, Other)
  Sender: FDA-Public Use
  Company Number: FR-ACTELION-A-CH2011-44351

PATIENT
  Sex: Female

DRUGS (7)
  1. REVATIO [Concomitant]
  2. LEVOTHYROX [Concomitant]
  3. TRACLEER [Suspect]
     Dosage: 125 MG, BID
     Route: 048
  4. LASIX [Concomitant]
  5. TRACLEER [Suspect]
     Indication: PULMONARY ARTERIAL HYPERTENSION
     Dosage: 187.5 MG, BID
     Route: 048
  6. AMLODIPINE BESYLATE [Concomitant]
  7. TRACLEER [Suspect]
     Dosage: 62.5 MG, BID
     Route: 048
     Dates: start: 20040101

REACTIONS (12)
  - BREAST CANCER [None]
  - TACHYCARDIA [None]
  - CYANOSIS [None]
  - OXYGEN SATURATION DECREASED [None]
  - PULMONARY EMBOLISM [None]
  - SURGERY [None]
  - RADIOTHERAPY [None]
  - DYSPNOEA [None]
  - CARDIAC ABLATION [None]
  - HYPOTHYROIDISM [None]
  - OEDEMA PERIPHERAL [None]
  - CHEST PAIN [None]
